FAERS Safety Report 9034987 (Version 1)
Quarter: 2013Q1

REPORT INFORMATION
  Report Type: Spontaneous
  Country: US (occurrence: US)
  Receive Date: 20130129
  Receipt Date: 20130129
  Transmission Date: 20140127
  Serious: Yes (Other)
  Sender: FDA-Public Use
  Company Number: US-JNJFOC-20130111633

PATIENT
  Sex: Female
  Weight: 54.43 kg

DRUGS (2)
  1. INVEGA SUSTENNA [Suspect]
     Indication: SCHIZOPHRENIA
     Dosage: TWO LOADING DOSES OF 156 MG
     Route: 030
     Dates: start: 2012
  2. INVEGA SUSTENNA [Suspect]
     Indication: SCHIZOPHRENIA
     Dosage: MAINTENANCE DOSE
     Route: 030
     Dates: start: 20121203

REACTIONS (3)
  - Delirium [Not Recovered/Not Resolved]
  - Sedation [Not Recovered/Not Resolved]
  - Medication error [Not Recovered/Not Resolved]
